FAERS Safety Report 12691840 (Version 2)
Quarter: 2016Q3

REPORT INFORMATION
  Report Type: Spontaneous
  Country: GB (occurrence: GB)
  Receive Date: 20160826
  Receipt Date: 20160927
  Transmission Date: 20161109
  Serious: Yes (Life-Threatening, Hospitalization, Other)
  Sender: FDA-Public Use
  Company Number: GB-INTERNATIONAL MEDICATION SYSTEMS, LIMITED-1056802

PATIENT
  Age: 50 Year
  Sex: Male

DRUGS (7)
  1. HEPARIN [Suspect]
     Active Substance: HEPARIN SODIUM
  2. HEPARIN [Suspect]
     Active Substance: HEPARIN SODIUM
     Route: 042
     Dates: start: 20160512
  3. BISOPROLOL [Suspect]
     Active Substance: BISOPROLOL
  4. DIAZEPAM. [Suspect]
     Active Substance: DIAZEPAM
  5. MONOPARIN [Suspect]
     Active Substance: HEPARIN SODIUM
     Route: 058
     Dates: start: 20160512, end: 20160615
  6. AMIODARONE INJECTION [Suspect]
     Active Substance: AMIODARONE
     Indication: PRODUCT USED FOR UNKNOWN INDICATION
  7. APIXABAN [Suspect]
     Active Substance: APIXABAN

REACTIONS (12)
  - Thrombocytopenia [Unknown]
  - Monoplegia [Unknown]
  - Hypoaesthesia [Not Recovered/Not Resolved]
  - Renal failure [Unknown]
  - Septic shock [Unknown]
  - Back pain [Unknown]
  - Internal haemorrhage [Recovered/Resolved]
  - Malaise [Unknown]
  - Atrial fibrillation [Unknown]
  - Jaundice [Unknown]
  - Hepatic failure [Unknown]
  - Cardiac failure [Unknown]

NARRATIVE: CASE EVENT DATE: 20160514
